FAERS Safety Report 24134210 (Version 1)
Quarter: 2024Q3

REPORT INFORMATION
  Report Type: Report from Study
  Country: US (occurrence: US)
  Receive Date: 20240724
  Receipt Date: 20240724
  Transmission Date: 20241016
  Serious: Yes (Death)
  Sender: ABBVIE
  Company Number: US-ABBVIE-5851353

PATIENT
  Sex: Male

DRUGS (1)
  1. CREON [Suspect]
     Active Substance: PANCRELIPASE AMYLASE\PANCRELIPASE LIPASE\PANCRELIPASE PROTEASE
     Indication: Product used for unknown indication
     Dosage: LAST ADMINISTRATION DOSE DATE: 2024
     Route: 048
     Dates: start: 20240101

REACTIONS (2)
  - Sudden death [Fatal]
  - Pancreatic disorder [Unknown]

NARRATIVE: CASE EVENT DATE: 20240101
